FAERS Safety Report 16744653 (Version 1)
Quarter: 2019Q3

REPORT INFORMATION
  Report Type: Spontaneous
  Country: GR (occurrence: GR)
  Receive Date: 20190827
  Receipt Date: 20190827
  Transmission Date: 20191005
  Serious: Yes (Death, Hospitalization)
  Sender: FDA-Public Use
  Company Number: GR-PFIZER INC-2006099518

PATIENT
  Age: 54 Year
  Sex: Female

DRUGS (3)
  1. LOSEC [Concomitant]
     Active Substance: OMEPRAZOLE
     Indication: PROPHYLAXIS
     Dosage: 40 MG, 2X/DAY
     Route: 042
     Dates: start: 20060709, end: 20060714
  2. SUTENT [Suspect]
     Active Substance: SUNITINIB MALATE
     Indication: RENAL CANCER METASTATIC
     Dosage: 50 MG, 1X/DAY
     Route: 048
     Dates: start: 20060701, end: 20060713
  3. CIPROXIN [Concomitant]
     Active Substance: CIPROFLOXACIN
     Dosage: 400 MG, 1X/DAY
     Route: 042
     Dates: start: 20060709, end: 20060714

REACTIONS (6)
  - Chromaturia [Fatal]
  - Sweat discolouration [Fatal]
  - Saliva discolouration [Fatal]
  - Cardiac failure [Fatal]
  - Yellow skin [Fatal]
  - Dyspnoea [Recovered/Resolved]

NARRATIVE: CASE EVENT DATE: 20060703
